FAERS Safety Report 9823932 (Version 2)
Quarter: 2015Q3

REPORT INFORMATION
  Report Type: Spontaneous
  Country: US (occurrence: US)
  Receive Date: 20140116
  Receipt Date: 20150807
  Transmission Date: 20151125
  Serious: No
  Sender: FDA-Public Use
  Company Number: US-GILEAD-2011-0038064

PATIENT
  Age: 80 Year
  Sex: Female

DRUGS (7)
  1. FAMOTIDINE. [Concomitant]
     Active Substance: FAMOTIDINE
  2. ALLOPURINOL. [Concomitant]
     Active Substance: ALLOPURINOL
  3. ADCIRCA [Concomitant]
     Active Substance: TADALAFIL
  4. AMPYRA [Concomitant]
     Active Substance: DALFAMPRIDINE
  5. FUROSEMIDE. [Concomitant]
     Active Substance: FUROSEMIDE
  6. LETAIRIS [Suspect]
     Active Substance: AMBRISENTAN
     Indication: PULMONARY HYPERTENSION
     Route: 048
     Dates: start: 20110316
  7. ALENDRONATE [Concomitant]
     Active Substance: ALENDRONATE SODIUM

REACTIONS (7)
  - Constipation [Unknown]
  - Peripheral swelling [Unknown]
  - Nausea [Unknown]
  - Dyspnoea [Unknown]
  - Oedema [Unknown]
  - Headache [Unknown]
  - Weight increased [Unknown]
